FAERS Safety Report 6507935-4 (Version None)
Quarter: 2009Q4

REPORT INFORMATION
  Report Type: 
  Country: None (occurrence: None)
  Receive Date: 20091221
  Receipt Date: 20091217
  Transmission Date: 20100525
  Serious: Yes (Hospitalization)
  Sender: FDA-Public Use
  Company Number: B0606183A

PATIENT
  Sex: Male

DRUGS (4)
  1. AUGMENTIN '125' [Suspect]
     Indication: HEADACHE
     Route: 048
     Dates: start: 20091001, end: 20091001
  2. APRANAX [Suspect]
     Indication: HEADACHE
     Route: 065
     Dates: start: 20091001, end: 20091001
  3. LANTUS [Concomitant]
     Route: 065
  4. NOVONORM [Concomitant]
     Route: 065

REACTIONS (6)
  - CYTOLYTIC HEPATITIS [None]
  - HEPATIC PAIN [None]
  - JAUNDICE [None]
  - OCULAR ICTERUS [None]
  - PLATELET COUNT ABNORMAL [None]
  - PRURITUS [None]
